FAERS Safety Report 24151058 (Version 2)
Quarter: 2024Q3

REPORT INFORMATION
  Report Type: Spontaneous
  Country: ES (occurrence: ES)
  Receive Date: 20240730
  Receipt Date: 20240810
  Transmission Date: 20241016
  Serious: Yes (Other)
  Sender: TEVA
  Company Number: ES-TEVA-VS-3223517

PATIENT
  Age: 34 Year
  Sex: Male

DRUGS (18)
  1. ETOPOSIDE [Suspect]
     Active Substance: ETOPOSIDE
     Indication: Desmoplastic small round cell tumour
     Dosage: RECEIVED 2 CYCLES. DAY1-5 EVERY 3 WEEKS
     Route: 065
  2. VINORELBINE [Suspect]
     Active Substance: VINORELBINE TARTRATE
     Indication: Desmoplastic small round cell tumour
     Dosage: ON DAYS 1 AND 8 EVERY 28 DAYS.
     Route: 065
     Dates: start: 20211228, end: 20220313
  3. DOXORUBICIN [Suspect]
     Active Substance: DOXORUBICIN
     Indication: Desmoplastic small round cell tumour
     Dosage: DAY1-3 EVERY 3?WEEKS. RECEIVED 5 CYCLES
     Route: 065
     Dates: start: 20180808
  4. VINCRISTINE [Suspect]
     Active Substance: VINCRISTINE
     Indication: Desmoplastic small round cell tumour
     Dosage: DAY1-3 EVERY 3?WEEKS. RECEIVED 5 CYCLES
     Route: 065
     Dates: start: 20180808
  5. TRABECTEDIN [Suspect]
     Active Substance: TRABECTEDIN
     Indication: Desmoplastic small round cell tumour
     Route: 065
     Dates: start: 201907
  6. TRABECTEDIN [Suspect]
     Active Substance: TRABECTEDIN
     Indication: Desmoplastic small round cell tumour
     Route: 065
  7. IRINOTECAN [Suspect]
     Active Substance: IRINOTECAN
     Indication: Desmoplastic small round cell tumour
     Dosage: RECEIVED 3 CYCLES. ON DAY1-5,  EVERY 21 DAYS
     Route: 065
     Dates: start: 201904
  8. PAZOPANIB [Suspect]
     Active Substance: PAZOPANIB
     Indication: Desmoplastic small round cell tumour
     Route: 065
     Dates: start: 202010
  9. DOCETAXEL [Suspect]
     Active Substance: DOCETAXEL\DOCETAXEL ANHYDROUS
     Indication: Desmoplastic small round cell tumour
     Dosage: ON DAY 8 EVERY 21 DAYS. RECEIVED 7 CYCLES
     Route: 065
     Dates: start: 202107, end: 202112
  10. IFOSFAMIDE [Suspect]
     Active Substance: IFOSFAMIDE
     Indication: Desmoplastic small round cell tumour
     Dosage: HIGH DOSE. RECEIVED 1 CYCLE
     Route: 065
  11. IFOSFAMIDE [Suspect]
     Active Substance: IFOSFAMIDE
     Indication: Desmoplastic small round cell tumour
     Dosage: RECEIVED 2 CYCLES
     Route: 065
  12. FILGRASTIM [Concomitant]
     Active Substance: FILGRASTIM
     Indication: Prophylaxis
     Route: 065
     Dates: start: 201907
  13. TOPOTECAN [Suspect]
     Active Substance: TOPOTECAN HYDROCHLORIDE
     Indication: Desmoplastic small round cell tumour
     Dosage: ON DAY1-5,  EVERY 3 WEEKS
     Route: 065
     Dates: start: 202103
  14. CYCLOPHOSPHAMIDE [Suspect]
     Active Substance: CYCLOPHOSPHAMIDE
     Indication: Desmoplastic small round cell tumour
     Dosage: DAYS 1-5 EVERY 3 WEEKS
     Route: 065
     Dates: start: 202103, end: 2021
  15. CYCLOPHOSPHAMIDE [Suspect]
     Active Substance: CYCLOPHOSPHAMIDE
     Indication: Desmoplastic small round cell tumour
     Dosage: DAY1-28 EVERY 28 DAYS
     Route: 048
     Dates: start: 20211228, end: 20220313
  16. CYCLOPHOSPHAMIDE [Suspect]
     Active Substance: CYCLOPHOSPHAMIDE
     Indication: Desmoplastic small round cell tumour
     Dosage: DAY1-2 EVERY 3 WEEKS. RECEIVED 5 CYCLES
     Route: 065
     Dates: start: 20180808
  17. TEMOZOLOMIDE [Suspect]
     Active Substance: TEMOZOLOMIDE
     Indication: Desmoplastic small round cell tumour
     Dosage: RECEIVED 3 CYCLES. ON DAY1-5,  EVERY 21 DAYS
     Route: 065
     Dates: start: 201904
  18. GEMCITABINE [Suspect]
     Active Substance: GEMCITABINE
     Indication: Desmoplastic small round cell tumour
     Dosage: DAYS 1 AND 8 ,EVERY 21 DAYS. RECEIVED 7 CYCLES
     Route: 065
     Dates: start: 202107, end: 202112

REACTIONS (5)
  - Febrile neutropenia [Unknown]
  - Thrombocytopenia [Unknown]
  - Neutropenia [Unknown]
  - Drug ineffective [Unknown]
  - Haematotoxicity [Unknown]
